FAERS Safety Report 7446216-1 (Version None)
Quarter: 2011Q2

REPORT INFORMATION
  Report Type: 
  Country: None (occurrence: None)
  Receive Date: 20110429
  Receipt Date: 20110223
  Transmission Date: 20111010
  Serious: No
  Sender: FDA-Public Use
  Company Number: US-JNJFOC-20110208544

PATIENT
  Sex: Female
  Weight: 76.2 kg

DRUGS (5)
  1. INVEGA SUSTENNA [Suspect]
     Route: 030
  2. COUGH SYRUP [Concomitant]
     Route: 048
  3. NAPROXEN (ALEVE) [Concomitant]
     Route: 048
  4. CLARITIN [Concomitant]
     Route: 048
  5. INVEGA SUSTENNA [Suspect]
     Indication: PRODUCT USED FOR UNKNOWN INDICATION
     Route: 030

REACTIONS (6)
  - INJECTION SITE HAEMATOMA [None]
  - PRODUCT QUALITY ISSUE [None]
  - PHOTOPSIA [None]
  - INJECTION SITE PAIN [None]
  - WEIGHT DECREASED [None]
  - AMENORRHOEA [None]
